FAERS Safety Report 10529835 (Version 1)
Quarter: 2014Q4

REPORT INFORMATION
  Report Type: Spontaneous
  Country: US (occurrence: None)
  Receive Date: 20141017
  Receipt Date: 20141017
  Transmission Date: 20150528
  Serious: Yes (Other)
  Sender: FDA-Public Use
  Company Number: 2014-003035

PATIENT
  Age: 76 Year
  Sex: Female

DRUGS (4)
  1. ACTONEL [Suspect]
     Active Substance: RISEDRONATE SODIUM
     Indication: OSTEOPOROSIS
     Route: 048
     Dates: start: 1998, end: 201409
  2. ATENOLOL (ATENOLOL) [Concomitant]
     Active Substance: ATENOLOL
  3. MICARDIS [Concomitant]
     Active Substance: TELMISARTAN
  4. VITAMINS NOS [Concomitant]
     Active Substance: VITAMINS

REACTIONS (5)
  - Parkinson^s disease [None]
  - Throat irritation [None]
  - Arthralgia [None]
  - Foreign body [None]
  - Restless legs syndrome [None]

NARRATIVE: CASE EVENT DATE: 2009
